FAERS Safety Report 17362853 (Version 1)
Quarter: 2020Q1

REPORT INFORMATION
  Report Type: Spontaneous
  Country: DE (occurrence: DE)
  Receive Date: 20200203
  Receipt Date: 20200203
  Transmission Date: 20200409
  Serious: Yes (Hospitalization)
  Sender: FDA-Public Use
  Company Number: DE-MYLANLABS-2020M1011302

PATIENT
  Age: 67 Year
  Sex: Female

DRUGS (4)
  1. QUETIAPINE. [Suspect]
     Active Substance: QUETIAPINE
     Indication: PRODUCT USED FOR UNKNOWN INDICATION
     Dosage: 100 MILLIGRAM
     Route: 048
     Dates: end: 20191025
  2. ABILIFY MAINTENA [Suspect]
     Active Substance: ARIPIPRAZOLE
     Indication: SCHIZOPHRENIA
     Dosage: TWO TIMES A DAY
     Route: 030
     Dates: start: 20191003, end: 20191005
  3. ABILIFY MAINTENA [Suspect]
     Active Substance: ARIPIPRAZOLE
     Indication: SCHIZOPHRENIA
     Dosage: 15 MILLIGRAM
     Route: 048
     Dates: start: 20191005
  4. ABILIFY MAINTENA [Suspect]
     Active Substance: ARIPIPRAZOLE
     Dosage: 400 MILLIGRAM, TOTAL
     Dates: start: 201910

REACTIONS (5)
  - Intention tremor [Unknown]
  - Schizophrenia [Unknown]
  - Dyskinesia [Unknown]
  - Muscle tightness [Recovering/Resolving]
  - Drug monitoring procedure incorrectly performed [Unknown]
